FAERS Safety Report 16752329 (Version 1)
Quarter: 2019Q3

REPORT INFORMATION
  Report Type: Spontaneous
  Country: IT (occurrence: IT)
  Receive Date: 20190828
  Receipt Date: 20190828
  Transmission Date: 20191005
  Serious: Yes (Other)
  Sender: FDA-Public Use
  Company Number: IT-TEVA-2019-IT-1097408

PATIENT
  Age: 79 Year
  Sex: Male

DRUGS (7)
  1. SINVACOR [Concomitant]
     Active Substance: SIMVASTATIN
  2. LOPRESOR [Suspect]
     Active Substance: METOPROLOL
     Indication: HYPERTENSION
     Dosage: 1 DF
     Dates: start: 20180101, end: 20180927
  3. PEPTAZOL [Concomitant]
  4. ASCRIPTIN [Concomitant]
     Active Substance: ASPIRIN
  5. AMLODIPINE [Suspect]
     Active Substance: AMLODIPINE BESYLATE
     Indication: HYPERTENSION
     Dosage: 1 DF
     Dates: start: 20180101, end: 20180927
  6. TRIATEC 5 MG COMPRESSE [Suspect]
     Active Substance: RAMIPRIL
     Indication: HYPERTENSION
     Dosage: 1 DF
     Dates: start: 20180101, end: 20180927
  7. ANTRA [Concomitant]
     Active Substance: OMEPRAZOLE

REACTIONS (2)
  - Syncope [Recovering/Resolving]
  - Loss of consciousness [Recovering/Resolving]

NARRATIVE: CASE EVENT DATE: 20180927
